FAERS Safety Report 9378114 (Version 1)
Quarter: 2013Q3

REPORT INFORMATION
  Report Type: Spontaneous
  Country: FR (occurrence: FR)
  Receive Date: 20130701
  Receipt Date: 20130701
  Transmission Date: 20140515
  Serious: Yes (Life-Threatening, Hospitalization)
  Sender: FDA-Public Use
  Company Number: FR-CUBIST PHARMACEUTICALS, INC.-2013CBST000591

PATIENT
  Age: 64 Year
  Sex: Female

DRUGS (5)
  1. CUBICIN [Suspect]
     Indication: SEPSIS
     Dosage: 350 MG, QD
     Route: 042
     Dates: start: 20130503, end: 20130506
  2. CUBICIN [Suspect]
     Indication: OFF LABEL USE
  3. CORDARONE [Suspect]
     Indication: PRODUCT USED FOR UNKNOWN INDICATION
     Dosage: UNK
     Dates: start: 201304
  4. HALDOL /00027401/ [Suspect]
     Indication: PRODUCT USED FOR UNKNOWN INDICATION
     Dosage: 10 DRP, TID
  5. AMOXICILLIN [Concomitant]
     Indication: PRODUCT USED FOR UNKNOWN INDICATION

REACTIONS (1)
  - Renal failure acute [Recovered/Resolved]
